FAERS Safety Report 6590998-8 (Version None)
Quarter: 2010Q1

REPORT INFORMATION
  Report Type: 
  Country: None (occurrence: None)
  Receive Date: 20100219
  Receipt Date: 20100210
  Transmission Date: 20100710
  Serious: Yes (Other)
  Sender: FDA-Public Use
  Company Number: BE-ELI_LILLY_AND_COMPANY-BE200911004097

PATIENT
  Sex: Male
  Weight: 71 kg

DRUGS (5)
  1. BYETTA [Suspect]
     Indication: TYPE 2 DIABETES MELLITUS
     Dosage: 5 UG, 2/D
     Route: 058
     Dates: start: 20080806, end: 20080905
  2. BYETTA [Suspect]
     Dosage: 10 UG, 2/D
     Route: 058
     Dates: start: 20080906, end: 20090605
  3. DAONIL [Concomitant]
     Indication: DIABETES MELLITUS
     Dosage: 2 D/F, DAILY (1/D)
     Route: 048
     Dates: start: 20060101, end: 20091016
  4. DIOVANE [Concomitant]
     Indication: HYPERTENSION
     Dosage: 0.5 D/F, DAILY (1/D)
     Route: 065
     Dates: start: 20060101
  5. INEGY [Concomitant]
     Indication: HYPERCHOLESTEROLAEMIA
     Dosage: 1 D/F, DAILY (1/D)
     Route: 048
     Dates: start: 20090211

REACTIONS (2)
  - GASTROINTESTINAL DISORDER [None]
  - PANCREATITIS [None]
